FAERS Safety Report 4571620-9 (Version None)
Quarter: 2005Q1

REPORT INFORMATION
  Report Type: 
  Country: None (occurrence: None)
  Receive Date: 20050203
  Receipt Date: 20050203
  Transmission Date: 20050727
  Serious: Yes (Other)
  Sender: FDA-Public Use
  Company Number: None

PATIENT
  Sex: Male
  Weight: 77.1115 kg

DRUGS (1)
  1. DILANTIN [Suspect]
     Dosage: 300 MG DAILY

REACTIONS (3)
  - CONVULSION [None]
  - PHARMACEUTICAL PRODUCT COMPLAINT [None]
  - THERAPY NON-RESPONDER [None]
